FAERS Safety Report 18228201 (Version 2)
Quarter: 2020Q3

REPORT INFORMATION
  Report Type: Report from Study
  Country: None (occurrence: US)
  Receive Date: 20200903
  Receipt Date: 20200922
  Transmission Date: 20201103
  Serious: Yes (Hospitalization)
  Sender: FDA-Public Use
  Company Number: US-INSMED, INC.-US-INS-19-03578

PATIENT
  Age: 58 Year
  Sex: Female

DRUGS (4)
  1. ARIKAYCE [Suspect]
     Active Substance: AMIKACIN
     Indication: MYCOBACTERIAL INFECTION
     Route: 055
     Dates: start: 20191024, end: 2019
  2. ARIKAYCE [Suspect]
     Active Substance: AMIKACIN
     Route: 055
     Dates: start: 2020
  3. ARIKAYCE [Suspect]
     Active Substance: AMIKACIN
     Dosage: TAKING MEDICATION ON MON, WED AND FRI.
     Route: 055
  4. ARIKAYCE [Suspect]
     Active Substance: AMIKACIN
     Route: 055
     Dates: start: 20200331, end: 2020

REACTIONS (6)
  - Eye pruritus [Not Recovered/Not Resolved]
  - Off label use [Unknown]
  - Cardiac disorder [Not Recovered/Not Resolved]
  - Sputum discoloured [Unknown]
  - Dyspnoea [Recovering/Resolving]
  - Cough [Unknown]

NARRATIVE: CASE EVENT DATE: 2019
